FAERS Safety Report 21361530 (Version 1)
Quarter: 2022Q3

REPORT INFORMATION
  Report Type: Spontaneous
  Country: CA (occurrence: CA)
  Receive Date: 20220921
  Receipt Date: 20220921
  Transmission Date: 20221027
  Serious: No
  Sender: FDA-Public Use
  Company Number: CA-PADAGIS-2022PAD00644

PATIENT

DRUGS (2)
  1. BELLADONNA AND OPIUM [Suspect]
     Active Substance: ATROPA BELLADONNA\OPIUM
     Indication: Proctalgia
     Dosage: UNK
     Route: 065
  2. BELLADONNA AND OPIUM [Suspect]
     Active Substance: ATROPA BELLADONNA\OPIUM
     Indication: Levator syndrome

REACTIONS (3)
  - Therapy partial responder [Unknown]
  - Product supply issue [Unknown]
  - Product use in unapproved indication [Unknown]
